FAERS Safety Report 5300275-0 (Version None)
Quarter: 2007Q2

REPORT INFORMATION
  Report Type: 
  Country: None (occurrence: None)
  Receive Date: 20070418
  Receipt Date: 20070413
  Transmission Date: 20071010
  Serious: Yes (Life-Threatening)
  Sender: FDA-Public Use
  Company Number: DE-BAYER-200710469BVD

PATIENT
  Age: 73 Year
  Sex: Male

DRUGS (1)
  1. MOXIFLOXACIN HCL [Suspect]
     Indication: CHOLECYSTITIS
     Route: 042
     Dates: start: 20070411, end: 20070413

REACTIONS (4)
  - CHOLECYSTITIS [None]
  - INFLAMMATION [None]
  - PAIN [None]
  - PYREXIA [None]
